FAERS Safety Report 9542286 (Version 1)
Quarter: 2013Q3

REPORT INFORMATION
  Report Type: Spontaneous
  Country: DE (occurrence: DE)
  Receive Date: 20130923
  Receipt Date: 20130923
  Transmission Date: 20140515
  Serious: Yes (Other)
  Sender: FDA-Public Use
  Company Number: DE-NAPPMUNDI-DEU-2013-0012415

PATIENT
  Sex: Female

DRUGS (3)
  1. NORSPAN 5 UG/H [Suspect]
     Indication: PRODUCT USED FOR UNKNOWN INDICATION
     Dosage: 5 MCG, Q1H
     Route: 062
  2. ANTIDEPRESSANTS [Interacting]
     Indication: PRODUCT USED FOR UNKNOWN INDICATION
     Route: 065
  3. FENTANYL [Suspect]
     Indication: PAIN
     Route: 062

REACTIONS (2)
  - Potentiating drug interaction [Recovering/Resolving]
  - Serotonin syndrome [Recovering/Resolving]
